FAERS Safety Report 13712704 (Version 2)
Quarter: 2017Q3

REPORT INFORMATION
  Report Type: Spontaneous
  Country: GB (occurrence: GB)
  Receive Date: 20170703
  Receipt Date: 20170824
  Transmission Date: 20171127
  Serious: Yes (Death, Hospitalization, Other)
  Sender: FDA-Public Use
  Company Number: GB-MYLANLABS-2017M1039805

PATIENT

DRUGS (1)
  1. LOPERAMIDE [Suspect]
     Active Substance: LOPERAMIDE
     Dosage: DOSE: 200 - 400 MGS
     Route: 048

REACTIONS (3)
  - Cardiac arrest [Fatal]
  - Coma scale abnormal [Unknown]
  - Overdose [Unknown]
